FAERS Safety Report 18812816 (Version 2)
Quarter: 2021Q1

REPORT INFORMATION
  Report Type: Spontaneous
  Country: US (occurrence: US)
  Receive Date: 20210131
  Receipt Date: 20210203
  Transmission Date: 20210419
  Serious: No
  Sender: FDA-Public Use
  Company Number: US-009507513-2101USA011523

PATIENT
  Age: 18 Year
  Sex: Female
  Weight: 59.42 kg

DRUGS (1)
  1. NEXPLANON [Suspect]
     Active Substance: ETONOGESTREL
     Indication: CONTRACEPTION
     Dosage: IMPLNT (68 MG) (LEFT UPPER ARM BETWEEN THE BICEP AND TRICEPS MUSCLE)
     Route: 059
     Dates: start: 20191127, end: 20210121

REACTIONS (2)
  - Device breakage [Recovered/Resolved]
  - Amenorrhoea [Recovered/Resolved]
